FAERS Safety Report 14856906 (Version 1)
Quarter: 2018Q2

REPORT INFORMATION
  Report Type: Spontaneous
  Country: US (occurrence: US)
  Receive Date: 20180507
  Receipt Date: 20180507
  Transmission Date: 20180711
  Serious: No
  Sender: FDA-Public Use
  Company Number: US-ROCHE-2082920

PATIENT
  Age: 79 Year
  Sex: Female

DRUGS (7)
  1. BREO ELLIPTA [Concomitant]
     Active Substance: FLUTICASONE FUROATE\VILANTEROL TRIFENATATE
  2. BENZONATATE. [Concomitant]
     Active Substance: BENZONATATE
  3. ATROVENT HFA [Concomitant]
     Active Substance: IPRATROPIUM BROMIDE
  4. ESBRIET [Suspect]
     Active Substance: PIRFENIDONE
     Indication: IDIOPATHIC PULMONARY FIBROSIS
     Route: 048
     Dates: start: 20180223
  5. ESBRIET [Suspect]
     Active Substance: PIRFENIDONE
     Dosage: TOOK DOUBLE DOSE
     Route: 048
     Dates: start: 20180226
  6. AMOXICILLIN. [Concomitant]
     Active Substance: AMOXICILLIN
  7. ASPIRIN. [Concomitant]
     Active Substance: ASPIRIN
     Dosage: LOW DOSE
     Route: 065

REACTIONS (3)
  - No adverse event [Unknown]
  - Drug administration error [Unknown]
  - Extra dose administered [Unknown]

NARRATIVE: CASE EVENT DATE: 20180226
